FAERS Safety Report 7485765-7 (Version None)
Quarter: 2011Q2

REPORT INFORMATION
  Report Type: 
  Country: None (occurrence: None)
  Receive Date: 20110517
  Receipt Date: 20110203
  Transmission Date: 20111010
  Serious: Yes (Hospitalization)
  Sender: FDA-Public Use
  Company Number: GB-BAYER-2011-013516

PATIENT
  Sex: Female

DRUGS (5)
  1. ACETYLSALICYLIC ACID SRT [Suspect]
  2. GLEEVEC [Suspect]
     Dosage: 100 MG, UNK
     Dates: start: 20110110
  3. SIMVASTATIN [Concomitant]
  4. GLEEVEC [Suspect]
     Indication: CHRONIC MYELOID LEUKAEMIA
     Dosage: 400 MG, UNK
     Dates: start: 20101208, end: 20110106
  5. WARFARIN SODIUM [Suspect]

REACTIONS (5)
  - MALAISE [None]
  - MELAENA [None]
  - DECREASED APPETITE [None]
  - DIZZINESS [None]
  - NAUSEA [None]
